FAERS Safety Report 10626563 (Version 5)
Quarter: 2015Q1

REPORT INFORMATION
  Report Type: Report from Study
  Country: CA (occurrence: CA)
  Receive Date: 20141204
  Receipt Date: 20150206
  Transmission Date: 20150720
  Serious: Yes (Hospitalization)
  Sender: FDA-Public Use
  Company Number: CA-PFIZER INC-2014323788

PATIENT
  Age: 52 Year
  Sex: Male
  Weight: 83 kg

DRUGS (16)
  1. IRINOTECAN HCL [Suspect]
     Active Substance: IRINOTECAN HYDROCHLORIDE
     Indication: COLORECTAL CANCER METASTATIC
     Dosage: 370 MG, CYCLIC (EVERY 2 WEEKS)
     Route: 042
     Dates: start: 20140929
  2. ZOPICLONE [Concomitant]
     Active Substance: ZOPICLONE
     Indication: INSOMNIA
     Dosage: UNK
     Dates: start: 2013
  3. PF-05212384 [Suspect]
     Active Substance: GEDATOLISIB
     Indication: COLORECTAL CANCER METASTATIC
     Dosage: 110 MG, WEEKLY
     Route: 042
     Dates: start: 20141006
  4. DEXAMETHASONE. [Concomitant]
     Active Substance: DEXAMETHASONE
     Indication: PROPHYLAXIS
  5. LEUCOVORIN [Suspect]
     Active Substance: LEUCOVORIN
     Indication: COLORECTAL CANCER METASTATIC
     Dosage: 825 MG, CYCLIC (EVERY 2 WEEKS)
     Route: 042
     Dates: start: 20140929
  6. ONDANSETRON [Concomitant]
     Active Substance: ONDANSETRON
     Indication: PREMEDICATION
     Dosage: UNK
     Dates: start: 20140929
  7. FLU SHOT [Concomitant]
     Active Substance: INFLUENZA VIRUS VACCINE
     Indication: PROPHYLAXIS
     Dosage: UNK
     Dates: start: 20141114, end: 20141114
  8. ACIDOPHILUS [Concomitant]
     Active Substance: LACTOBACILLUS ACIDOPHILUS
     Indication: SUPPLEMENTATION THERAPY
     Dosage: UNK
     Dates: start: 2013
  9. METAMUCIL [Concomitant]
     Active Substance: PLANTAGO SEED
     Indication: CONSTIPATION PROPHYLAXIS
     Dosage: UNK
     Dates: start: 201311
  10. DEXAMETHASONE. [Concomitant]
     Active Substance: DEXAMETHASONE
     Indication: PREMEDICATION
     Dosage: UNK
     Dates: start: 20140929
  11. METOCLOPRAMIDE. [Concomitant]
     Active Substance: METOCLOPRAMIDE
     Indication: HICCUPS
     Dosage: UNK
     Dates: start: 20140929
  12. FLUOROURACIL. [Suspect]
     Active Substance: FLUOROURACIL
     Indication: COLORECTAL CANCER METASTATIC
     Dosage: 825 MG, CYCLIC (EVERY 2 WEEKS)
     Route: 040
     Dates: start: 20140929
  13. ONDANSETRON [Concomitant]
     Active Substance: ONDANSETRON
     Indication: PROPHYLAXIS
  14. FLUOROURACIL. [Suspect]
     Active Substance: FLUOROURACIL
     Dosage: 4950 MG, CYCLIC (46 HOUR INFUSION EVERY 2 WEEKS)
     Route: 042
     Dates: start: 20140929
  15. IMODIUM [Concomitant]
     Active Substance: LOPERAMIDE HYDROCHLORIDE
     Indication: PROPHYLAXIS AGAINST DIARRHOEA
     Dosage: UNK
     Dates: start: 201311
  16. SULCRATE [Concomitant]
     Active Substance: SUCRALFATE
     Indication: ORAL PAIN
     Dosage: UNK
     Dates: start: 20141007

REACTIONS (1)
  - Periorbital infection [Recovered/Resolved]

NARRATIVE: CASE EVENT DATE: 20141116
